FAERS Safety Report 19913209 (Version 13)
Quarter: 2024Q3

REPORT INFORMATION
  Report Type: Spontaneous
  Country: CZ (occurrence: CZ)
  Receive Date: 20211004
  Receipt Date: 20240812
  Transmission Date: 20241016
  Serious: Yes (Hospitalization, Other)
  Sender: MYLAN
  Company Number: CZ-MYLANLABS-2021M1068490

PATIENT
  Age: 20 Year
  Sex: Female

DRUGS (20)
  1. LEVETIRACETAM [Suspect]
     Active Substance: LEVETIRACETAM
     Indication: Seizure
     Dosage: UNK
     Route: 065
  2. LEVETIRACETAM [Suspect]
     Active Substance: LEVETIRACETAM
     Indication: Mixed anxiety and depressive disorder
     Dosage: 400 MILLIGRAM, QD
     Route: 065
  3. LEVETIRACETAM [Suspect]
     Active Substance: LEVETIRACETAM
     Indication: Epilepsy
  4. LEVETIRACETAM [Suspect]
     Active Substance: LEVETIRACETAM
     Indication: Partial seizures with secondary generalisation
  5. LEVETIRACETAM [Suspect]
     Active Substance: LEVETIRACETAM
     Indication: Partial seizures
  6. LEVETIRACETAM [Suspect]
     Active Substance: LEVETIRACETAM
     Indication: Depression
  7. LAMOTRIGINE [Suspect]
     Active Substance: LAMOTRIGINE
     Indication: Seizure
     Dosage: 400 MILLIGRAM, QD
     Route: 065
  8. LAMOTRIGINE [Suspect]
     Active Substance: LAMOTRIGINE
     Indication: Epilepsy
  9. LAMOTRIGINE [Suspect]
     Active Substance: LAMOTRIGINE
     Indication: Partial seizures with secondary generalisation
  10. BRIVARACETAM [Suspect]
     Active Substance: BRIVARACETAM
     Indication: Seizure
     Dosage: 50 MILLIGRAM, BID
     Route: 065
  11. BRIVARACETAM [Suspect]
     Active Substance: BRIVARACETAM
     Dosage: UNK
     Route: 065
  12. VALPROATE [Suspect]
     Active Substance: VALPROIC ACID
     Indication: Epilepsy
     Dosage: UNK
     Route: 065
  13. VALPROATE [Suspect]
     Active Substance: VALPROIC ACID
     Indication: Seizure
     Dosage: 400 MILLIGRAM, QD
     Route: 065
  14. VALPROATE [Suspect]
     Active Substance: VALPROIC ACID
     Indication: Mixed anxiety and depressive disorder
     Dosage: 1500 MILLIGRAM, QD, 1500 MG/DAY
     Route: 065
  15. VALPROATE [Suspect]
     Active Substance: VALPROIC ACID
     Indication: Partial seizures with secondary generalisation
  16. VALPROATE [Suspect]
     Active Substance: VALPROIC ACID
     Indication: Partial seizures
  17. ESLICARBAZEPINE ACETATE [Suspect]
     Active Substance: ESLICARBAZEPINE ACETATE
     Indication: Partial seizures
     Dosage: 800 MILLIGRAM, QD, 800 MG/DAY
     Route: 065
  18. ESLICARBAZEPINE ACETATE [Suspect]
     Active Substance: ESLICARBAZEPINE ACETATE
     Indication: Epilepsy
  19. VALPROATE [Concomitant]
     Active Substance: VALPROIC ACID
     Indication: Partial seizures
     Dosage: 1500 MILLIGRAM, QD (1500 MG/DAY)
     Route: 065
  20. ESLICARBAZEPINE ACETATE [Concomitant]
     Active Substance: ESLICARBAZEPINE ACETATE
     Indication: Partial seizures
     Dosage: 800 MILLIGRAM, QD (800 MG/DAY)
     Route: 065

REACTIONS (14)
  - COVID-19 [Unknown]
  - Concomitant disease aggravated [Unknown]
  - Mixed anxiety and depressive disorder [Unknown]
  - Psychiatric symptom [Recovered/Resolved]
  - Depression [Recovered/Resolved]
  - Mental disorder [Unknown]
  - Increased appetite [Unknown]
  - Therapeutic product effect incomplete [Unknown]
  - Drug ineffective [Unknown]
  - Depressive symptom [Unknown]
  - Weight increased [Recovering/Resolving]
  - Hirsutism [Recovering/Resolving]
  - Polycystic ovaries [Recovering/Resolving]
  - Treatment failure [Unknown]
